FAERS Safety Report 13671625 (Version 1)
Quarter: 2017Q2

REPORT INFORMATION
  Report Type: Spontaneous
  Country: US (occurrence: US)
  Receive Date: 20170620
  Receipt Date: 20170620
  Transmission Date: 20170830
  Serious: No
  Sender: FDA-Public Use
  Company Number: US-ROCHE-645250

PATIENT
  Age: 83 Year
  Sex: Female

DRUGS (4)
  1. XELODA [Suspect]
     Active Substance: CAPECITABINE
     Indication: COLON CANCER
     Dosage: IN THE MORNING AND IN THE EVENING
     Route: 048
  2. OXALIPLATIN. [Concomitant]
     Active Substance: OXALIPLATIN
     Route: 042
  3. XELODA [Suspect]
     Active Substance: CAPECITABINE
     Dosage: IN THE MORNING AND IN THE EVENING
     Route: 048
  4. XELODA [Suspect]
     Active Substance: CAPECITABINE
     Dosage: IN THE MORNING AND IN THE EVENING
     Route: 048
     Dates: start: 20090720, end: 20090721

REACTIONS (2)
  - Palmar-plantar erythrodysaesthesia syndrome [Not Recovered/Not Resolved]
  - Diarrhoea [Not Recovered/Not Resolved]

NARRATIVE: CASE EVENT DATE: 20090718
